FAERS Safety Report 25998065 (Version 2)
Quarter: 2025Q4

REPORT INFORMATION
  Report Type: Report from Study
  Country: US (occurrence: US)
  Receive Date: 20251105
  Receipt Date: 20251223
  Transmission Date: 20260118
  Serious: Yes (Hospitalization, Other)
  Sender: ALEXION PHARMACEUTICALS
  Company Number: US-AstraZeneca-CH-00983769A

PATIENT

DRUGS (1)
  1. RAVULIZUMAB [Suspect]
     Active Substance: RAVULIZUMAB
     Indication: Myasthenia gravis
     Dosage: UNK
     Route: 065

REACTIONS (6)
  - Cellulitis [Unknown]
  - Loss of consciousness [Unknown]
  - Symptom recurrence [Unknown]
  - Feeling abnormal [Unknown]
  - Urinary tract infection [Unknown]
  - Herpes zoster [Unknown]
